FAERS Safety Report 20605022 (Version 3)
Quarter: 2022Q2

REPORT INFORMATION
  Report Type: Other
  Country: DE (occurrence: None)
  Receive Date: 20220317
  Receipt Date: 20220510
  Transmission Date: 20220721
  Serious: No
  Sender: FDA-Public Use
  Company Number: DE-ROCHE-3049517

PATIENT
  Age: 35 Year
  Sex: Female

DRUGS (8)
  1. OCRELIZUMAB [Suspect]
     Active Substance: OCRELIZUMAB
     Indication: Relapsing-remitting multiple sclerosis
     Dosage: ONCE
     Route: 042
     Dates: start: 20220128
  2. EUTHYROX [Concomitant]
     Active Substance: LEVOTHYROXINE SODIUM
     Indication: Hypothyroidism
     Route: 048
     Dates: start: 2015
  3. CHOLECALCIFEROL [Concomitant]
     Active Substance: CHOLECALCIFEROL
     Indication: Vitamin D deficiency
     Route: 048
     Dates: start: 202010
  4. ETHINYL ESTRADIOL\LEVONORGESTREL [Concomitant]
     Active Substance: ETHINYL ESTRADIOL\LEVONORGESTREL
     Indication: Prophylaxis
     Dosage: 125/30 MCG
     Route: 048
     Dates: start: 2015
  5. PREDNISOLONE [Concomitant]
     Active Substance: PREDNISOLONE
     Dosage: V1 BASELINE
     Route: 042
     Dates: start: 20220128, end: 20220128
  6. PREDNISOLONE [Concomitant]
     Active Substance: PREDNISOLONE
     Dosage: V1 BASELINE - 2ND INFUSION
     Route: 042
     Dates: start: 20220214, end: 20220214
  7. EBASTINE [Concomitant]
     Active Substance: EBASTINE
     Dosage: 2 TIMES A DAY FOR 3 DAYS, STARTING THE DAY BEFORE INFUSION?V1 BASELINE
     Route: 048
     Dates: start: 20220127, end: 20220129
  8. EBASTINE [Concomitant]
     Active Substance: EBASTINE
     Dosage: 2 TIMES A DAY FOR 3 DAYS, STARTING THE DAY BEFORE INFUSION?V1 BASELINE - 2ND INFUSION
     Route: 048
     Dates: start: 20220214, end: 20220214

REACTIONS (1)
  - COVID-19 [Unknown]

NARRATIVE: CASE EVENT DATE: 20220223
